FAERS Safety Report 8373023-8 (Version None)
Quarter: 2012Q2

REPORT INFORMATION
  Report Type: 
  Country: None (occurrence: None)
  Receive Date: 20120521
  Receipt Date: 20120514
  Transmission Date: 20120825
  Serious: Yes (Disabling)
  Sender: FDA-Public Use
  Company Number: JP-B.I. PHARMACEUTICALS,INC./RIDGEFIELD-2012-BP-10749NB

PATIENT
  Age: 50 Year
  Sex: Male
  Weight: 65.5 kg

DRUGS (5)
  1. LIPITOR [Concomitant]
     Indication: DYSLIPIDAEMIA
     Dosage: 10 MG
     Route: 048
     Dates: end: 20111201
  2. LANSOPRAZOLE [Concomitant]
     Dosage: 15 MG
     Route: 048
     Dates: end: 20111201
  3. PRADAXA [Suspect]
     Indication: AORTIC VALVE REPLACEMENT
     Dosage: 300 MG
     Route: 048
     Dates: start: 20110301
  4. CARVEDILOL [Concomitant]
     Dosage: 10 MG
     Route: 048
     Dates: end: 20111201
  5. DIOVAN [Concomitant]
     Indication: HYPERTENSION
     Dosage: 160 MG
     Route: 048
     Dates: end: 20111201

REACTIONS (1)
  - CEREBRAL INFARCTION [None]
